FAERS Safety Report 7820351 (Version 19)
Quarter: 2015Q3

REPORT INFORMATION
  Report Type: Report from Study
  Country: CA (occurrence: CA)
  Receive Date: 20110221
  Receipt Date: 20150706
  Transmission Date: 20151125
  Serious: Yes (Hospitalization, Other)
  Sender: FDA-Public Use
  Company Number: PHHY2011CA10753

PATIENT
  Age: 85 Year
  Sex: Male

DRUGS (3)
  1. AMIODARONE [Suspect]
     Active Substance: AMIODARONE
     Indication: PRODUCT USED FOR UNKNOWN INDICATION
     Route: 065
  2. SANDOSTATIN LAR DEPOT [Suspect]
     Active Substance: OCTREOTIDE ACETATE
     Indication: CARCINOID TUMOUR
     Dosage: 30 MG, QMO (EVERY 4 WEEKS)
     Route: 030
     Dates: start: 20061213
  3. SANDOSTATIN LAR DEPOT [Suspect]
     Active Substance: OCTREOTIDE ACETATE
     Dosage: 30 MG, QMO (EVERY 4 WEEKS)
     Route: 030

REACTIONS (8)
  - Speech disorder [Recovering/Resolving]
  - Tachycardia [Recovering/Resolving]
  - Intestinal haemorrhage [Recovered/Resolved]
  - Cerebrovascular accident [Unknown]
  - Cardiac disorder [Unknown]
  - Heart rate increased [Recovering/Resolving]
  - Constipation [Unknown]
  - Limb injury [Unknown]

NARRATIVE: CASE EVENT DATE: 20150409
